FAERS Safety Report 12977673 (Version 6)
Quarter: 2021Q4

REPORT INFORMATION
  Report Type: Other
  Country: CA (occurrence: CA)
  Receive Date: 20161128
  Receipt Date: 20211002
  Transmission Date: 20220303
  Serious: Yes (Other)
  Sender: FDA-Public Use
  Company Number: CA-002147023-PHHY2016CA161900

PATIENT
  Age: 8 Year
  Sex: Female

DRUGS (12)
  1. XOLAIR [Suspect]
     Active Substance: OMALIZUMAB
     Indication: Asthma
     Route: 058
     Dates: start: 20160712
  2. XOLAIR [Suspect]
     Active Substance: OMALIZUMAB
     Route: 058
     Dates: start: 201610
  3. XOLAIR [Suspect]
     Active Substance: OMALIZUMAB
     Route: 058
     Dates: start: 201705
  4. XOLAIR [Suspect]
     Active Substance: OMALIZUMAB
     Route: 058
  5. XOLAIR [Suspect]
     Active Substance: OMALIZUMAB
     Route: 058
     Dates: start: 20170713
  6. XOLAIR [Suspect]
     Active Substance: OMALIZUMAB
     Route: 058
     Dates: start: 20170810
  7. XOLAIR [Suspect]
     Active Substance: OMALIZUMAB
     Route: 058
     Dates: start: 201610
  8. VENTOLIN [Concomitant]
     Active Substance: ALBUTEROL SULFATE
     Indication: Product used for unknown indication
     Route: 065
  9. ALVESCO [Concomitant]
     Active Substance: CICLESONIDE
     Indication: Product used for unknown indication
     Route: 065
  10. SINGULAIR [Concomitant]
     Active Substance: MONTELUKAST SODIUM
     Indication: Product used for unknown indication
     Route: 065
  11. AERIUS [Concomitant]
     Indication: Product used for unknown indication
     Route: 065
  12. SEREVENT DISKUS [Concomitant]
     Active Substance: SALMETEROL XINAFOATE
     Indication: Product used for unknown indication
     Route: 065

REACTIONS (11)
  - Adrenal insufficiency [Unknown]
  - Dyspnoea exertional [Recovering/Resolving]
  - Chest pain [Recovering/Resolving]
  - Dizziness [Unknown]
  - Drug ineffective [Unknown]
  - Injection site pain [Unknown]
  - Asthma [Unknown]
  - Headache [Recovered/Resolved]
  - Nausea [Unknown]
  - Performance status decreased [Unknown]
  - Fatigue [Recovered/Resolved]

NARRATIVE: CASE EVENT DATE: 20170713
